FAERS Safety Report 5132684-7 (Version None)
Quarter: 2006Q4

REPORT INFORMATION
  Report Type: 
  Country: None (occurrence: None)
  Receive Date: 20061017
  Receipt Date: 20061004
  Transmission Date: 20070319
  Serious: Yes (Hospitalization)
  Sender: FDA-Public Use
  Company Number: MEDI-0004995

PATIENT
  Age: 11 Month
  Sex: 0

DRUGS (2)
  1. SYNAGIS [Suspect]
     Indication: ANTIVIRAL PROPHYLAXIS
     Dosage: 99 MG, INTRAMUSCULAR; SEE IMAGE
     Route: 030
     Dates: start: 20051222, end: 20060123
  2. SYNAGIS [Suspect]
     Indication: ANTIVIRAL PROPHYLAXIS
     Dosage: 99 MG, INTRAMUSCULAR; SEE IMAGE
     Route: 030
     Dates: start: 20051222

REACTIONS (1)
  - PYELONEPHRITIS [None]
